FAERS Safety Report 9255831 (Version 1)
Quarter: 2013Q2

REPORT INFORMATION
  Report Type: Other
  Country: US (occurrence: US)
  Receive Date: 20130425
  Receipt Date: 20130425
  Transmission Date: 20140414
  Serious: Yes (Other)
  Sender: FDA-Public Use
  Company Number: US-PURDUE-DEU-2013-0011295

PATIENT
  Age: 39 Year
  Sex: Female

DRUGS (1)
  1. NON-PMN MORPHINE SULFATE [Suspect]
     Indication: ANALGESIC THERAPY
     Route: 008

REACTIONS (2)
  - Palatal oedema [Recovered/Resolved]
  - Pruritus [Recovered/Resolved]
